FAERS Safety Report 7552598-2 (Version None)
Quarter: 2011Q2

REPORT INFORMATION
  Report Type: 
  Country: None (occurrence: None)
  Receive Date: 20110616
  Receipt Date: 20110614
  Transmission Date: 20111010
  Serious: Yes (Other)
  Sender: FDA-Public Use
  Company Number: DE-ABBOTT-11P-062-0729923-00

PATIENT
  Sex: Male
  Weight: 110 kg

DRUGS (4)
  1. TARKA [Suspect]
     Indication: PRODUCT USED FOR UNKNOWN INDICATION
     Dosage: 14 TABLETS
     Route: 048
     Dates: start: 20110601, end: 20110601
  2. BISOPROLOL FUMARATE [Suspect]
     Indication: PRODUCT USED FOR UNKNOWN INDICATION
     Dosage: 5/12.5 MG, 20 TABLETS
     Route: 048
     Dates: start: 20110601, end: 20110601
  3. TELMISARTAN [Suspect]
     Indication: PRODUCT USED FOR UNKNOWN INDICATION
  4. AMLODIPINE [Suspect]
     Indication: PRODUCT USED FOR UNKNOWN INDICATION
     Dosage: 25 TABLETS
     Route: 048
     Dates: start: 20110601, end: 20110601

REACTIONS (1)
  - SUICIDAL IDEATION [None]
